FAERS Safety Report 6508979-9 (Version None)
Quarter: 2009Q4

REPORT INFORMATION
  Report Type: 
  Country: None (occurrence: None)
  Receive Date: 20091221
  Receipt Date: 20090904
  Transmission Date: 20100525
  Serious: No
  Sender: FDA-Public Use
  Company Number: US-ASTRAZENECA-2009SE11784

PATIENT
  Age: 60 Year
  Sex: Male

DRUGS (7)
  1. CRESTOR [Suspect]
     Route: 048
     Dates: start: 20060101, end: 20090701
  2. CRESTOR [Suspect]
     Route: 048
     Dates: start: 20090701
  3. ALTASE [Concomitant]
  4. COREG [Concomitant]
  5. BABY ASPIRIN [Concomitant]
  6. CO Q10 [Concomitant]
  7. FISH OIL [Concomitant]

REACTIONS (4)
  - BACK PAIN [None]
  - LOW DENSITY LIPOPROTEIN DECREASED [None]
  - MYALGIA [None]
  - PAIN IN EXTREMITY [None]
